FAERS Safety Report 23175067 (Version 2)
Quarter: 2023Q4

REPORT INFORMATION
  Report Type: Report from Study
  Country: JP (occurrence: JP)
  Receive Date: 20231112
  Receipt Date: 20231219
  Transmission Date: 20240109
  Serious: Yes (Death, Life-Threatening, Hospitalization, Disabling, Other)
  Sender: FDA-Public Use
  Company Number: JP-JNJFOC-20231013822

PATIENT
  Age: 44 Year
  Sex: Female
  Weight: 71 kg

DRUGS (9)
  1. SIRTURO [Suspect]
     Active Substance: BEDAQUILINE FUMARATE
     Indication: Pulmonary tuberculosis
     Route: 048
     Dates: start: 20230811, end: 20230824
  2. SIRTURO [Suspect]
     Active Substance: BEDAQUILINE FUMARATE
     Dosage: DRUG STOP DATE: 22/OCT/2023
     Route: 048
     Dates: start: 20230825
  3. DEXAMETHASONE [Suspect]
     Active Substance: DEXAMETHASONE
     Indication: Product used for unknown indication
     Dosage: DOSE UNKNOWN
     Route: 065
  4. DELAMANID [Concomitant]
     Active Substance: DELAMANID
     Indication: Pulmonary tuberculosis
     Route: 048
  5. LAMPRENE [Concomitant]
     Active Substance: CLOFAZIMINE
     Indication: Pulmonary tuberculosis
     Dosage: DRUG STOP DATE: 22/OCT/2023
     Route: 048
  6. CYCLOSERINE [Concomitant]
     Active Substance: CYCLOSERINE
     Indication: Pulmonary tuberculosis
     Dosage: DRUG STOP DATE: 22/OCT/2023
     Route: 048
  7. LINEZOLID [Concomitant]
     Active Substance: LINEZOLID
     Indication: Pulmonary tuberculosis
     Dosage: DRUG STOP DATE: 22/OCT/2023
     Route: 065
  8. HEPARINOID [Concomitant]
     Indication: Cerebral infarction
     Dosage: DOSE UNKNOWN, DRUG START DATE: //2023
     Route: 065
  9. GANCICLOVIR [Concomitant]
     Active Substance: GANCICLOVIR
     Indication: Cytomegalovirus infection
     Dosage: DRUG START DATE: //2023
     Route: 065

REACTIONS (3)
  - Cerebral infarction [Fatal]
  - Cytomegalovirus infection [Fatal]
  - Hydrocephalus [Fatal]

NARRATIVE: CASE EVENT DATE: 20230101
